FAERS Safety Report 18147872 (Version 1)
Quarter: 2020Q3

REPORT INFORMATION
  Report Type: Spontaneous
  Country: US (occurrence: US)
  Receive Date: 20200813
  Receipt Date: 20200813
  Transmission Date: 20201103
  Serious: No
  Sender: FDA-Public Use
  Company Number: US-TEVA-2020-US-1814066

PATIENT

DRUGS (2)
  1. CLONAZEPAM. [Concomitant]
     Active Substance: CLONAZEPAM
     Indication: SLEEP DISORDER
     Route: 065
  2. PROVIGIL [Suspect]
     Active Substance: MODAFINIL
     Indication: SLEEP DISORDER
     Route: 065

REACTIONS (3)
  - Product dose omission issue [Unknown]
  - Adverse event [Unknown]
  - Memory impairment [Unknown]
